FAERS Safety Report 19303953 (Version 1)
Quarter: 2021Q2

REPORT INFORMATION
  Report Type: Spontaneous
  Country: IT (occurrence: IT)
  Receive Date: 20210525
  Receipt Date: 20210525
  Transmission Date: 20210717
  Serious: Yes (Other)
  Sender: FDA-Public Use
  Company Number: IT-PFIZER INC-2021548441

PATIENT
  Age: 38 Year
  Sex: Male

DRUGS (1)
  1. XANAX [Suspect]
     Active Substance: ALPRAZOLAM
     Dosage: UNK
     Dates: start: 200010

REACTIONS (8)
  - Syncope [Unknown]
  - Road traffic accident [Unknown]
  - Incorrect product administration duration [Unknown]
  - Drug ineffective [Unknown]
  - Dizziness [Unknown]
  - Language disorder [Unknown]
  - Fatigue [Unknown]
  - Feeling abnormal [Unknown]
